FAERS Safety Report 15962581 (Version 5)
Quarter: 2019Q2

REPORT INFORMATION
  Report Type: Report from Study
  Country: CA (occurrence: CA)
  Receive Date: 20190214
  Receipt Date: 20190514
  Transmission Date: 20190711
  Serious: Yes (Other)
  Sender: FDA-Public Use
  Company Number: CA-JNJFOC-20190215103

PATIENT
  Sex: Male
  Weight: 64.5 kg

DRUGS (1)
  1. REMICADE [Suspect]
     Active Substance: INFLIXIMAB
     Indication: CROHN^S DISEASE
     Dosage: STRENGTH = 100 MG
     Route: 042

REACTIONS (7)
  - Off label use [Unknown]
  - Middle ear effusion [Unknown]
  - Therapeutic product effect decreased [Unknown]
  - Crohn^s disease [Recovered/Resolved]
  - Product use issue [Unknown]
  - Upper respiratory tract infection [Recovering/Resolving]
  - Tympanic membrane perforation [Recovering/Resolving]
